FAERS Safety Report 5097542-5 (Version None)
Quarter: 2006Q3

REPORT INFORMATION
  Report Type: 
  Country: None (occurrence: None)
  Receive Date: 20060901
  Receipt Date: 20060816
  Transmission Date: 20061208
  Serious: Yes (Other)
  Sender: FDA-Public Use
  Company Number: 2006AD000061

PATIENT
  Age: 42 Year
  Sex: Female

DRUGS (1)
  1. KEFLEX [Suspect]
     Indication: ERYSIPELAS
     Dosage: 500 M G;Q6H;PO
     Route: 048
     Dates: start: 20050616, end: 20060619

REACTIONS (7)
  - BLADDER DISORDER [None]
  - LEIOMYOMA [None]
  - OVARIAN DISORDER [None]
  - PRURITUS GENERALISED [None]
  - STEVENS-JOHNSON SYNDROME [None]
  - SYNCOPE [None]
  - UTERINE LEIOMYOMA [None]
